FAERS Safety Report 14183003 (Version 1)
Quarter: 2017Q4

REPORT INFORMATION
  Report Type: Spontaneous
  Country: RU (occurrence: RU)
  Receive Date: 20171113
  Receipt Date: 20171113
  Transmission Date: 20180321
  Serious: Yes (Death)
  Sender: FDA-Public Use
  Company Number: RU-ABBVIE-17P-251-2161467-00

PATIENT
  Sex: Male

DRUGS (1)
  1. KLACID [Suspect]
     Active Substance: CLARITHROMYCIN
     Indication: PRODUCT USED FOR UNKNOWN INDICATION
     Dosage: REPORTER WAS NOT SURE IF IT WAS KLACID 500MG TABLETS OR KLACID SR
     Route: 065

REACTIONS (2)
  - Hallucination [Unknown]
  - Death [Fatal]
